FAERS Safety Report 14707300 (Version 1)
Quarter: 2018Q2

REPORT INFORMATION
  Report Type: Spontaneous
  Country: BR (occurrence: BR)
  Receive Date: 20180403
  Receipt Date: 20180403
  Transmission Date: 20180711
  Serious: Yes (Other)
  Sender: FDA-Public Use
  Company Number: BR-ROCHE-2099477

PATIENT
  Sex: Female

DRUGS (3)
  1. RIVOTRIL [Suspect]
     Active Substance: CLONAZEPAM
     Indication: ANXIETY
  2. RIVOTRIL [Suspect]
     Active Substance: CLONAZEPAM
     Indication: DEPRESSION
     Route: 065
  3. CLONAZEPAM. [Suspect]
     Active Substance: CLONAZEPAM
     Indication: PRODUCT USED FOR UNKNOWN INDICATION
     Route: 065

REACTIONS (2)
  - Arrhythmia [Not Recovered/Not Resolved]
  - Malaise [Not Recovered/Not Resolved]
